FAERS Safety Report 16964674 (Version 2)
Quarter: 2019Q4

REPORT INFORMATION
  Report Type: Spontaneous
  Country: CH (occurrence: CH)
  Receive Date: 20191028
  Receipt Date: 20191202
  Transmission Date: 20200122
  Serious: Yes (Life-Threatening, Hospitalization, Other)
  Sender: FDA-Public Use
  Company Number: CH-TEVA-2019-CH-1128735

PATIENT
  Sex: Male

DRUGS (8)
  1. MILRINONE [Suspect]
     Active Substance: MILRINONE
     Indication: VASOPLEGIA SYNDROME
     Dosage: 0.5 MICROG/KG/MIN
     Route: 065
  2. PIPERACILLIN AND TAZOBACTAM [Concomitant]
     Active Substance: PIPERACILLIN SODIUM\TAZOBACTAM SODIUM
     Indication: ANTIBIOTIC THERAPY
     Route: 065
  3. NORADRENALINE [Suspect]
     Active Substance: NOREPINEPHRINE
     Dosage: 0.3 MICROG/KG/MIN
     Route: 065
  4. VANCOMYCIN [Suspect]
     Active Substance: VANCOMYCIN
     Indication: ANTIBIOTIC THERAPY
     Dosage: 1.5 KDA
     Route: 065
  5. ADRENALINE [Suspect]
     Active Substance: EPINEPHRINE
     Indication: VASOPLEGIA SYNDROME
     Dosage: 0.5 MICROG/KG/MIN
     Route: 065
  6. NORADRENALINE [Suspect]
     Active Substance: NOREPINEPHRINE
     Indication: VASOPLEGIA SYNDROME
     Dosage: 0.4 MICROG/KG/MIN
     Route: 065
  7. ADRENALINE [Suspect]
     Active Substance: EPINEPHRINE
     Dosage: 0.3 MICROG/KG/MIN
     Route: 065
  8. DOPAMINE [Suspect]
     Active Substance: DOPAMINE HYDROCHLORIDE
     Indication: VASOPLEGIA SYNDROME
     Dosage: 10 MICROG/KG/MIN
     Route: 065

REACTIONS (3)
  - Toxicity to various agents [Recovered/Resolved]
  - Drug ineffective [Unknown]
  - Acute kidney injury [Recovered/Resolved]
